FAERS Safety Report 4543347-0 (Version None)
Quarter: 2005Q1

REPORT INFORMATION
  Report Type: 
  Country: None (occurrence: None)
  Receive Date: 20050103
  Receipt Date: 20041222
  Transmission Date: 20050727
  Serious: Yes (Hospitalization)
  Sender: FDA-Public Use
  Company Number: FR-ROCHE-390373

PATIENT
  Age: 59 Year
  Sex: Male

DRUGS (5)
  1. ROFERON-A [Suspect]
     Route: 058
  2. SORIATANE [Concomitant]
  3. BACTRIM [Concomitant]
  4. FUNGIZONE [Concomitant]
     Indication: MYCOSIS FUNGOIDES
  5. FLUCONAZOLE [Concomitant]

REACTIONS (3)
  - ARRHYTHMIA [None]
  - ATRIAL FIBRILLATION [None]
  - MALAISE [None]
